FAERS Safety Report 17455973 (Version 1)
Quarter: 2020Q1

REPORT INFORMATION
  Report Type: Spontaneous
  Country: US (occurrence: US)
  Receive Date: 20200225
  Receipt Date: 20200225
  Transmission Date: 20200409
  Serious: Yes (Other)
  Sender: FDA-Public Use
  Company Number: NVSC2020US046850

PATIENT
  Sex: Female

DRUGS (5)
  1. TAFINLAR [Suspect]
     Active Substance: DABRAFENIB MESYLATE
     Indication: PRODUCT USED FOR UNKNOWN INDICATION
     Dosage: 275 MG, BID
     Route: 065
     Dates: start: 20190411
  2. TAFINLAR [Suspect]
     Active Substance: DABRAFENIB MESYLATE
     Dosage: UNK UNK, BID
     Route: 065
  3. MEKINIST [Suspect]
     Active Substance: TRAMETINIB DIMETHYL SULFOXIDE
     Dosage: 2 UNK
     Route: 065
     Dates: start: 20200112
  4. TAFINLAR [Suspect]
     Active Substance: DABRAFENIB MESYLATE
     Dosage: 175 MG
     Route: 065
     Dates: start: 20200112
  5. MEKINIST [Suspect]
     Active Substance: TRAMETINIB DIMETHYL SULFOXIDE
     Indication: PRODUCT USED FOR UNKNOWN INDICATION
     Dosage: 2 MG, BID
     Route: 065

REACTIONS (12)
  - Migraine [Unknown]
  - Seizure [Unknown]
  - Night sweats [Unknown]
  - Paraesthesia [Unknown]
  - Nausea [Unknown]
  - Arthralgia [Unknown]
  - Hypotension [Unknown]
  - Diarrhoea [Unknown]
  - Urticaria [Unknown]
  - Joint swelling [Unknown]
  - Pyrexia [Unknown]
  - Dry mouth [Unknown]
